FAERS Safety Report 9369301 (Version 1)
Quarter: 2013Q2

REPORT INFORMATION
  Report Type: Spontaneous
  Country: FR (occurrence: FR)
  Receive Date: 20130626
  Receipt Date: 20130626
  Transmission Date: 20140414
  Serious: Yes (Life-Threatening)
  Sender: FDA-Public Use
  Company Number: PHHY2013FR065322

PATIENT
  Age: 71 Year
  Sex: Male

DRUGS (6)
  1. EXFORGE [Suspect]
     Dosage: UNK UKN, UNK
     Dates: start: 20091124, end: 20091209
  2. ZYLORIC [Suspect]
     Dosage: UNK UKN, UNK
     Dates: start: 20091124, end: 20091208
  3. LASILIX [Concomitant]
     Dosage: UNK UKN, UNK
     Dates: start: 20091124, end: 20091209
  4. LASILIX [Concomitant]
     Dosage: UNK UKN, UNK
     Dates: start: 20091218, end: 20091230
  5. CARDENSIEL [Concomitant]
     Dosage: UNK UKN, UNK
     Dates: start: 20091202, end: 20091209
  6. CARDENSIEL [Concomitant]
     Dosage: UNK UKN, UNK
     Dates: start: 20091215

REACTIONS (6)
  - Drug reaction with eosinophilia and systemic symptoms [Not Recovered/Not Resolved]
  - Rash papular [Unknown]
  - Rash pustular [Unknown]
  - Eosinophilia [Unknown]
  - Skin lesion [Unknown]
  - Renal failure [Unknown]
